FAERS Safety Report 8289418-7 (Version None)
Quarter: 2012Q2

REPORT INFORMATION
  Report Type: 
  Country: None (occurrence: None)
  Receive Date: 20120417
  Receipt Date: 20120410
  Transmission Date: 20120825
  Serious: Yes (Hospitalization, Other)
  Sender: FDA-Public Use
  Company Number: BR-SANOFI-AVENTIS-2012SA025186

PATIENT
  Age: 64 Year
  Sex: Male
  Weight: 91 kg

DRUGS (9)
  1. LANTUS [Suspect]
     Route: 058
     Dates: start: 20090101
  2. AMLODIPINE [Concomitant]
     Dosage: DOSAGE 5 MG
     Route: 048
     Dates: start: 20000101
  3. ASPIRIN [Concomitant]
     Route: 048
     Dates: start: 20100101
  4. ALPRAZOLAM [Concomitant]
     Dosage: DOSAGE 0.5MG
     Route: 048
     Dates: start: 20110101
  5. PROPRANOLOL [Concomitant]
     Indication: BLOOD PRESSURE
     Route: 048
     Dates: start: 20000101
  6. LOSARTAN POTASSIUM [Concomitant]
     Indication: BLOOD PRESSURE
     Route: 048
     Dates: start: 20100101
  7. SIMVASTATIN [Concomitant]
     Dosage: DOSAGE 40MG
     Route: 048
     Dates: start: 20000101
  8. GALVUS [Concomitant]
     Route: 048
     Dates: start: 20110101
  9. AUTOPEN 24 [Concomitant]
     Indication: DEVICE THERAPY

REACTIONS (12)
  - PAIN [None]
  - HYPOGLYCAEMIA [None]
  - HYPOGLYCAEMIC COMA [None]
  - FEELING ABNORMAL [None]
  - PYREXIA [None]
  - KIDNEY INFECTION [None]
  - INFARCTION [None]
  - HYPERHIDROSIS [None]
  - HYPERGLYCAEMIA [None]
  - CHROMATURIA [None]
  - CHEST PAIN [None]
  - URINE ODOUR ABNORMAL [None]
